FAERS Safety Report 5202531-3 (Version None)
Quarter: 2006Q4

REPORT INFORMATION
  Report Type: 
  Country: None (occurrence: None)
  Receive Date: 20061018
  Receipt Date: 20060605
  Transmission Date: 20070319
  Serious: No
  Sender: FDA-Public Use
  Company Number: 2006RL000159

PATIENT
  Age: 67 Year
  Sex: Male
  Weight: 102.0593 kg

DRUGS (8)
  1. RYTHMOL [Suspect]
     Indication: ATRIAL FIBRILLATION
     Dosage: 325 MG, BID; PO
     Route: 048
     Dates: start: 20060411, end: 20060601
  2. VYTORIN [Concomitant]
  3. TOPROL-XL [Concomitant]
  4. CARDURA /IRE/ [Concomitant]
  5. AVODART [Concomitant]
  6. BENICAR [Concomitant]
  7. ASPIRIN [Concomitant]
  8. XALATAN [Concomitant]

REACTIONS (6)
  - ABDOMINAL PAIN UPPER [None]
  - CONDITION AGGRAVATED [None]
  - DYSPNOEA [None]
  - HEART RATE IRREGULAR [None]
  - MOUTH ULCERATION [None]
  - TACHYCARDIA [None]
